FAERS Safety Report 5153764-6 (Version None)
Quarter: 2006Q4

REPORT INFORMATION
  Report Type: 
  Country: None (occurrence: None)
  Receive Date: 20061120
  Receipt Date: 20060502
  Transmission Date: 20070319
  Serious: Yes (Hospitalization)
  Sender: FDA-Public Use
  Company Number: US-ELI_LILLY_AND_COMPANY-US200611002111

PATIENT
  Sex: Female
  Weight: 117.91 kg

DRUGS (2)
  1. ZYPREXA [Suspect]
     Dosage: 5 MG, UNK
     Dates: start: 20040301
  2. ZYPREXA [Suspect]
     Dosage: 7.5 MG, UNK
     Dates: start: 20040201, end: 20040301

REACTIONS (3)
  - COMA [None]
  - DIABETES MELLITUS [None]
  - LIVER TRANSPLANT [None]
